FAERS Safety Report 18512594 (Version 1)
Quarter: 2020Q4

REPORT INFORMATION
  Report Type: Report from Study
  Country: DE (occurrence: DE)
  Receive Date: 20201117
  Receipt Date: 20201117
  Transmission Date: 20210114
  Serious: Yes (Death, Hospitalization)
  Sender: FDA-Public Use
  Company Number: DE-MYLANLABS-2020M1094754

PATIENT
  Sex: Female
  Weight: 109.4 kg

DRUGS (5)
  1. FULVESTRANT. [Suspect]
     Active Substance: FULVESTRANT
     Indication: BREAST CANCER METASTATIC
     Dosage: 250 MG, QD (EVERY 4 WEEKS)
     Route: 030
     Dates: end: 20190606
  2. XGEVA [Concomitant]
     Active Substance: DENOSUMAB
     Indication: METASTASES TO BONE
     Dosage: 120 MG, Q4W
     Route: 058
     Dates: start: 20190808, end: 202003
  3. FULVESTRANT. [Suspect]
     Active Substance: FULVESTRANT
     Dosage: 500 MG, QD (EVERY FOURTH WEEK)
     Route: 030
     Dates: start: 20190308, end: 20190531
  4. ZOMETA [Suspect]
     Active Substance: ZOLEDRONIC ACID
     Indication: PROPHYLAXIS
     Dosage: 4 MG (EVERY 6 MONTHS)
     Route: 042
     Dates: start: 20090821, end: 20180910
  5. KISQALI [Suspect]
     Active Substance: RIBOCICLIB
     Indication: BREAST CANCER METASTATIC
     Dosage: 600 MG, QD (SCHEMA 21 DAYS INTAKE, THAN 7 DAYS PAUSE)
     Route: 048
     Dates: start: 20190308, end: 20200606

REACTIONS (5)
  - Off label use [Unknown]
  - Breast cancer metastatic [Fatal]
  - Osteonecrosis of jaw [Recovered/Resolved]
  - Malignant neoplasm progression [Fatal]
  - Osteonecrosis [Unknown]

NARRATIVE: CASE EVENT DATE: 20090821
